FAERS Safety Report 4609381-7 (Version None)
Quarter: 2005Q2

REPORT INFORMATION
  Report Type: 
  Country: None (occurrence: None)
  Receive Date: 20050301
  Receipt Date: 20041215
  Transmission Date: 20051028
  Serious: Yes (Hospitalization)
  Sender: FDA-Public Use
  Company Number: WAES 0412USA01958

PATIENT
  Sex: Female

DRUGS (2)
  1. ZETIA [Suspect]
     Indication: BLOOD CHOLESTEROL INCREASED
     Dosage: 10 MG DAILY PO
     Route: 048
     Dates: end: 20041015
  2. ZOCOR [Concomitant]

REACTIONS (1)
  - BLOOD CREATINE PHOSPHOKINASE INCREASED [None]
